FAERS Safety Report 25525153 (Version 1)
Quarter: 2025Q3

REPORT INFORMATION
  Report Type: Spontaneous
  Country: US (occurrence: None)
  Receive Date: 20250706
  Receipt Date: 20250706
  Transmission Date: 20251021
  Serious: Yes (Disabling, Other)
  Sender: FDA-CTU
  Company Number: None

PATIENT

DRUGS (4)
  1. DESVENLAFAXINE [Suspect]
     Active Substance: DESVENLAFAXINE
  2. EFFEXOR [Suspect]
     Active Substance: VENLAFAXINE HYDROCHLORIDE
  3. ZOLOFT [Suspect]
     Active Substance: SERTRALINE HYDROCHLORIDE
  4. LEXAPRO [Suspect]
     Active Substance: ESCITALOPRAM OXALATE

REACTIONS (15)
  - Drug withdrawal syndrome [None]
  - Electric shock sensation [None]
  - Cerebral disorder [None]
  - Nausea [None]
  - Headache [None]
  - Flat affect [None]
  - Sexual dysfunction [None]
  - Anhedonia [None]
  - Depression [None]
  - Weight increased [None]
  - Loss of libido [None]
  - Weight loss poor [None]
  - Anxiety [None]
  - Crying [None]
  - Pain [None]
